FAERS Safety Report 5875600-2 (Version None)
Quarter: 2008Q3

REPORT INFORMATION
  Report Type: 
  Country: None (occurrence: None)
  Receive Date: 20080909
  Receipt Date: 20080902
  Transmission Date: 20090109
  Serious: Yes (Life-Threatening, Hospitalization)
  Sender: FDA-Public Use
  Company Number: JP-ASTRAZENECA-2008SE04128

PATIENT
  Sex: Female
  Weight: 35 kg

DRUGS (11)
  1. BLOPRESS TABLETS 4 [Suspect]
     Indication: CARDIAC FAILURE CHRONIC
     Route: 048
     Dates: start: 20071101, end: 20080807
  2. ALDACTONE [Suspect]
     Route: 048
     Dates: start: 20071101, end: 20080807
  3. LASIX [Concomitant]
     Route: 048
     Dates: start: 20071101, end: 20080807
  4. VASOLAN [Concomitant]
     Route: 048
     Dates: start: 20071101, end: 20080807
  5. VASOLAN [Concomitant]
     Route: 048
     Dates: start: 20080813
  6. ARTIST [Concomitant]
     Route: 048
     Dates: start: 20071101, end: 20080116
  7. ARTIST [Concomitant]
     Route: 048
     Dates: start: 20080117, end: 20080807
  8. ARTIST [Concomitant]
     Route: 048
  9. ASPIRIN [Concomitant]
     Route: 048
     Dates: start: 20080117, end: 20080807
  10. ASPIRIN [Concomitant]
     Route: 048
  11. INDERAL [Concomitant]
     Route: 048
     Dates: start: 20071101, end: 20080807

REACTIONS (2)
  - BRADYCARDIA [None]
  - HYPERKALAEMIA [None]
